FAERS Safety Report 5113747-9 (Version None)
Quarter: 2006Q3

REPORT INFORMATION
  Report Type: 
  Country: None (occurrence: None)
  Receive Date: 20060920
  Receipt Date: 19911224
  Transmission Date: 20061208
  Serious: Yes (Death, Other)
  Sender: FDA-Public Use
  Company Number: 2006110757

PATIENT
  Age: 53 Year
  Sex: Female

DRUGS (3)
  1. IRINOTECAN HYDROCHLORIDE [Suspect]
     Indication: LARYNGEAL CANCER
     Dosage: 400  M G/M*2 (EVERY 2 WEEKS), INTRAVENOUS
     Route: 042
     Dates: start: 19911212, end: 19911212
  2. DICLOFENAC SODIUM [Concomitant]
  3. MORPHINE [Concomitant]

REACTIONS (2)
  - DIARRHOEA [None]
  - SEPTIC SHOCK [None]
